FAERS Safety Report 6740011-4 (Version None)
Quarter: 2010Q2

REPORT INFORMATION
  Report Type: 
  Country: None (occurrence: None)
  Receive Date: 20100525
  Receipt Date: 20100518
  Transmission Date: 20101027
  Serious: Yes (Other)
  Sender: FDA-Public Use
  Company Number: CHPA2010US08658

PATIENT
  Age: 84 Year
  Sex: Male
  Weight: 86.168 kg

DRUGS (4)
  1. BENEFIBER SUGAR FREE (NCH) [Suspect]
     Indication: NUTRITIONAL SUPPORT
     Dosage: 3 DF, BID
     Route: 048
     Dates: start: 20100501, end: 20100518
  2. BENEFIBER SUGAR FREE (NCH) [Suspect]
     Indication: CONSTIPATION
  3. INSULIN [Concomitant]
     Indication: DIABETES MELLITUS
     Dosage: UNK, UNK
  4. GLIMEPIRIDE [Concomitant]
     Indication: DIABETES MELLITUS
     Dosage: UNK, UNK
     Route: 048

REACTIONS (3)
  - BLOOD GLUCOSE INCREASED [None]
  - DIZZINESS [None]
  - OFF LABEL USE [None]
